FAERS Safety Report 7229824-2 (Version None)
Quarter: 2011Q1

REPORT INFORMATION
  Report Type: 
  Country: None (occurrence: None)
  Receive Date: 20110117
  Receipt Date: 20110114
  Transmission Date: 20110831
  Serious: Yes (Congenital Anomaly, Other)
  Sender: FDA-Public Use
  Company Number: DE-ABBOTT-10P-062-0679606-00

PATIENT
  Sex: Female
  Weight: 0.676 kg

DRUGS (3)
  1. TRUVADA [Suspect]
     Indication: DRUG EXPOSURE DURING PREGNANCY
     Route: 064
  2. NORVIR [Suspect]
     Indication: DRUG EXPOSURE DURING PREGNANCY
     Route: 064
  3. ATAZANAVIR SULFATE [Suspect]
     Indication: DRUG EXPOSURE DURING PREGNANCY
     Route: 064

REACTIONS (13)
  - DRUG EXPOSURE DURING PREGNANCY [None]
  - RETINOPATHY OF PREMATURITY [None]
  - ACUTE RESPIRATORY DISTRESS SYNDROME [None]
  - STRABISMUS [None]
  - BRONCHOPULMONARY DYSPLASIA [None]
  - HYDROCEPHALUS [None]
  - PERITONITIS [None]
  - MICROCEPHALY [None]
  - INTESTINAL PERFORATION [None]
  - PATENT DUCTUS ARTERIOSUS [None]
  - DEVELOPMENTAL DELAY [None]
  - PREMATURE BABY [None]
  - INTRAVENTRICULAR HAEMORRHAGE [None]
